FAERS Safety Report 11030182 (Version 2)
Quarter: 2015Q2

REPORT INFORMATION
  Report Type: Spontaneous
  Country: US (occurrence: US)
  Receive Date: 20150415
  Receipt Date: 20150615
  Transmission Date: 20150821
  Serious: Yes (Other)
  Sender: FDA-Public Use
  Company Number: US-BAYER-2015-133700

PATIENT
  Age: 44 Year
  Sex: Female
  Weight: 57.6 kg

DRUGS (2)
  1. MIRENA [Suspect]
     Active Substance: LEVONORGESTREL
     Indication: CONTRACEPTION
     Dosage: 20 MCG/24HR, CONT
     Route: 015
     Dates: start: 20150426
  2. MIRENA [Suspect]
     Active Substance: LEVONORGESTREL
     Indication: CONTRACEPTION
     Dosage: 20 MCG/24HR, CONT
     Route: 015
     Dates: start: 20140328, end: 20150423

REACTIONS (6)
  - Pelvic pain [None]
  - Menorrhagia [None]
  - Device use error [None]
  - Uterine haemorrhage [None]
  - Dysfunctional uterine bleeding [None]
  - Device expulsion [None]

NARRATIVE: CASE EVENT DATE: 20140328
